FAERS Safety Report 5708915-9 (Version None)
Quarter: 2008Q2

REPORT INFORMATION
  Report Type: 
  Country: None (occurrence: None)
  Receive Date: 20080417
  Receipt Date: 20080410
  Transmission Date: 20081010
  Serious: Yes (Hospitalization)
  Sender: FDA-Public Use
  Company Number: VE-ABBOTT-08P-178-0441434-00

PATIENT
  Age: 42 Year
  Sex: Female
  Weight: 60 kg

DRUGS (3)
  1. HUMIRA [Suspect]
     Indication: CROHN'S DISEASE
     Route: 058
     Dates: start: 20080101, end: 20080215
  2. MERCAPTOPURINE [Concomitant]
     Indication: CROHN'S DISEASE
  3. MESALAMINE [Concomitant]
     Indication: CROHN'S DISEASE

REACTIONS (5)
  - BLISTER [None]
  - NECK PAIN [None]
  - SKIN DISCOLOURATION [None]
  - SKIN INFLAMMATION [None]
  - SYSTEMIC LUPUS ERYTHEMATOSUS [None]
